FAERS Safety Report 5399113-X (Version None)
Quarter: 2007Q3

REPORT INFORMATION
  Report Type: 
  Country: None (occurrence: None)
  Receive Date: 20070727
  Receipt Date: 20061220
  Transmission Date: 20080115
  Serious: No
  Sender: FDA-Public Use
  Company Number: A0632095A

PATIENT
  Sex: Female

DRUGS (1)
  1. TAGAMET HB 200 [Suspect]
     Dates: start: 20061218, end: 20061218

REACTIONS (2)
  - DRUG INEFFECTIVE [None]
  - INTENTIONAL DRUG MISUSE [None]
